FAERS Safety Report 6203758-4 (Version None)
Quarter: 2009Q2

REPORT INFORMATION
  Report Type: 
  Country: None (occurrence: None)
  Receive Date: 20090526
  Receipt Date: 20090526
  Transmission Date: 20091009
  Serious: No
  Sender: FDA-Public Use
  Company Number: None

PATIENT
  Age: 6 Year
  Sex: Male
  Weight: 18.1439 kg

DRUGS (1)
  1. SINGULAIR [Suspect]
     Indication: ASTHMA
     Dosage: 1 PILL ONCE DAILY PO
     Route: 048
     Dates: start: 20090521, end: 20090522

REACTIONS (5)
  - COUGH [None]
  - CRYING [None]
  - SLEEP TERROR [None]
  - SOMNAMBULISM [None]
  - SPEECH DISORDER [None]
